FAERS Safety Report 18895266 (Version 1)
Quarter: 2021Q1

REPORT INFORMATION
  Report Type: Spontaneous
  Country: TW (occurrence: TW)
  Receive Date: 20210216
  Receipt Date: 20210216
  Transmission Date: 20210420
  Serious: Yes (Death)
  Sender: FDA-Public Use
  Company Number: TW-MTPC-MTPC2020-0068993

PATIENT
  Age: 42 Year
  Sex: Male

DRUGS (4)
  1. EDARAVONE [Suspect]
     Active Substance: EDARAVONE
     Indication: AMYOTROPHIC LATERAL SCLEROSIS
     Dosage: 2 AMPOULES/ DAY (60MG)
     Route: 042
     Dates: start: 20201029, end: 20201111
  2. EDARAVONE [Suspect]
     Active Substance: EDARAVONE
     Dosage: UNK
     Route: 065
     Dates: start: 20201101
  3. EDARAVONE [Suspect]
     Active Substance: EDARAVONE
     Dosage: UNK
     Route: 065
     Dates: start: 20201031
  4. LAIDEC [Suspect]
     Active Substance: RILUZOLE
     Dosage: UNK
     Route: 065
     Dates: start: 20201104, end: 20201111

REACTIONS (3)
  - Pyrexia [Fatal]
  - Respiratory failure [Fatal]
  - Chills [Fatal]

NARRATIVE: CASE EVENT DATE: 20201031
